FAERS Safety Report 9235176 (Version 1)
Quarter: 2013Q2

REPORT INFORMATION
  Report Type: Spontaneous
  Country: CL (occurrence: CL)
  Receive Date: 20130417
  Receipt Date: 20130417
  Transmission Date: 20140414
  Serious: Yes (Death)
  Sender: FDA-Public Use
  Company Number: CL-009507513-1304CHL006508

PATIENT
  Sex: Female

DRUGS (2)
  1. PEG-INTRON REDIPEN [Suspect]
     Indication: HEPATITIS C
     Dosage: UNK, QW
     Route: 058
  2. REBETOL [Suspect]
     Indication: HEPATITIS C
     Dosage: UNK, QD
     Route: 048

REACTIONS (1)
  - Death [Fatal]
